FAERS Safety Report 6740715-3 (Version None)
Quarter: 2010Q2

REPORT INFORMATION
  Report Type: 
  Country: None (occurrence: None)
  Receive Date: 20100520
  Receipt Date: 20091015
  Transmission Date: 20101027
  Serious: Yes (Other)
  Sender: FDA-Public Use
  Company Number: 2009262242

PATIENT
  Sex: Female

DRUGS (3)
  1. DEPO-PROVERA [Suspect]
  2. PRIMAQUINE [Concomitant]
  3. DOXYCYCLINE HYCLATE (DOXYCYCLINE HYCLATE) [Concomitant]

REACTIONS (2)
  - DRUG INEFFECTIVE [None]
  - UNINTENDED PREGNANCY [None]
